FAERS Safety Report 18313473 (Version 1)
Quarter: 2020Q3

REPORT INFORMATION
  Report Type: Spontaneous
  Country: GB (occurrence: GB)
  Receive Date: 20200925
  Receipt Date: 20200925
  Transmission Date: 20201103
  Serious: Yes (Other)
  Sender: FDA-Public Use
  Company Number: GB-TEVA-2020-GB-1830426

PATIENT
  Age: 65 Year
  Sex: Female
  Weight: 68.94 kg

DRUGS (2)
  1. HYPERICUM PERFORATUM [Concomitant]
     Active Substance: HYPERICUM PERFORATUM WHOLE
  2. ESOMEPRAZOLE. [Suspect]
     Active Substance: ESOMEPRAZOLE MAGNESIUM
     Indication: GASTROOESOPHAGEAL REFLUX DISEASE
     Dosage: INITIALLY REDUCING THE DOSE TO 20 MG ONE A DAY, THEN INCREASED BACK TO 20MG TWICE A DAY:UNIT DOSE:20
     Route: 048
     Dates: start: 2019

REACTIONS (4)
  - Depression [Unknown]
  - Affective disorder [Unknown]
  - Anxiety [Unknown]
  - Suicidal ideation [Unknown]

NARRATIVE: CASE EVENT DATE: 20200804
